FAERS Safety Report 11006814 (Version 1)
Quarter: 2015Q2

REPORT INFORMATION
  Report Type: Spontaneous
  Country: US (occurrence: US)
  Receive Date: 20150409
  Receipt Date: 20150409
  Transmission Date: 20150821
  Serious: No
  Sender: FDA-Public Use
  Company Number: US-ALLERGAN-1420914US

PATIENT
  Age: 54 Year
  Sex: Female

DRUGS (10)
  1. LATISSE [Suspect]
     Active Substance: BIMATOPROST
     Indication: GROWTH OF EYELASHES
     Dosage: 2 GTT, UNK
     Route: 061
     Dates: start: 20140903
  2. FLEXERIL [Concomitant]
     Active Substance: CYCLOBENZAPRINE HYDROCHLORIDE
     Indication: MUSCLE RELAXANT THERAPY
     Dosage: 10 MG, QHS
     Route: 048
  3. REFRESH [Concomitant]
     Active Substance: UNSPECIFIED INGREDIENT
     Indication: DRY EYE
  4. LATISSE [Suspect]
     Active Substance: BIMATOPROST
     Indication: ACCIDENTAL EXPOSURE TO PRODUCT
     Dosage: 4 GTT, SINGLE
     Route: 047
     Dates: start: 20140926, end: 20140926
  5. BOTOX COSMETIC [Concomitant]
     Active Substance: ONABOTULINUMTOXINA
     Indication: SKIN WRINKLING
  6. NORCO [Concomitant]
     Active Substance: ACETAMINOPHEN\HYDROCODONE BITARTRATE
     Indication: PAIN
     Dosage: 40 MG, PRN
     Route: 048
     Dates: start: 2004
  7. LATISSE [Suspect]
     Active Substance: BIMATOPROST
     Indication: HAIR GROWTH ABNORMAL
     Dosage: 2 GTT, UNK
     Route: 061
     Dates: start: 20140903
  8. BOTOX COSMETIC [Concomitant]
     Active Substance: ONABOTULINUMTOXINA
     Indication: SKIN WRINKLING
     Dosage: UNK UNK, SINGLE
     Dates: start: 20140614, end: 20140614
  9. PROZAC [Concomitant]
     Active Substance: FLUOXETINE HYDROCHLORIDE
     Indication: DEPRESSION
     Dosage: 30 MG, QD
     Route: 048
  10. XANAX [Concomitant]
     Active Substance: ALPRAZOLAM
     Indication: ANXIETY
     Dosage: 0.5 MG, TID
     Route: 048

REACTIONS (12)
  - Eye discharge [Recovering/Resolving]
  - Blepharal pigmentation [Unknown]
  - Instillation site erythema [Recovering/Resolving]
  - Ocular vascular disorder [Not Recovered/Not Resolved]
  - Vision blurred [Recovering/Resolving]
  - Eye disorder [Not Recovered/Not Resolved]
  - Eye discharge [Recovered/Resolved]
  - Eye irritation [Recovering/Resolving]
  - Conjunctivitis [Recovered/Resolved]
  - Foreign body sensation in eyes [Recovering/Resolving]
  - Off label use [Unknown]
  - Medication error [Unknown]

NARRATIVE: CASE EVENT DATE: 20140926
